FAERS Safety Report 25613955 (Version 2)
Quarter: 2025Q3

REPORT INFORMATION
  Report Type: Report from Study
  Country: CA (occurrence: CA)
  Receive Date: 20250728
  Receipt Date: 20250814
  Transmission Date: 20251020
  Serious: Yes (Hospitalization, Other)
  Sender: ALEXION PHARMACEUTICALS
  Company Number: CA-AstraZeneca-CH-00890308A

PATIENT
  Age: 65 Year
  Sex: Male
  Weight: 59 kg

DRUGS (7)
  1. DURVALUMAB [Suspect]
     Active Substance: DURVALUMAB
     Indication: Small cell lung cancer limited stage
     Dosage: 1500 MILLIGRAM, Q4W
     Dates: start: 20250411, end: 202505
  2. PREDNISONE [Suspect]
     Active Substance: PREDNISONE
     Dosage: 50 MILLIGRAM, QD
     Dates: start: 20250509, end: 20250530
  3. PREDNISONE [Suspect]
     Active Substance: PREDNISONE
     Dosage: 25 MILLIGRAM, QD
     Dates: start: 20250509, end: 20250530
  4. PREDNISONE [Suspect]
     Active Substance: PREDNISONE
     Dosage: 10 MILLIGRAM, QD
     Dates: start: 20250509, end: 20250530
  5. METHOTREXATE [Concomitant]
     Active Substance: METHOTREXATE
  6. SOLU-MEDROL [Concomitant]
     Active Substance: METHYLPREDNISOLONE SODIUM SUCCINATE
  7. SORIATANE [Concomitant]
     Active Substance: ACITRETIN

REACTIONS (14)
  - Drug eruption [Not Recovered/Not Resolved]
  - General physical health deterioration [Unknown]
  - Adrenal insufficiency [Unknown]
  - Dermatitis exfoliative generalised [Unknown]
  - Asthenia [Unknown]
  - Vitamin B12 deficiency [Unknown]
  - Hypertension [Unknown]
  - Face oedema [Unknown]
  - Palmoplantar keratoderma [Unknown]
  - Drug reaction with eosinophilia and systemic symptoms [Unknown]
  - Stevens-Johnson syndrome [Unknown]
  - Acute generalised exanthematous pustulosis [Unknown]
  - Hyperthyroidism [Unknown]
  - Off label use [Unknown]

NARRATIVE: CASE EVENT DATE: 20250501
